FAERS Safety Report 7553203-1 (Version None)
Quarter: 2011Q2

REPORT INFORMATION
  Report Type: 
  Country: None (occurrence: None)
  Receive Date: 20110617
  Receipt Date: 20110609
  Transmission Date: 20111010
  Serious: Yes (Hospitalization, Other)
  Sender: FDA-Public Use
  Company Number: US-BIOGENIDEC-2007BI024788

PATIENT
  Age: 63 Year
  Sex: Female

DRUGS (2)
  1. AVONEX [Suspect]
     Route: 030
     Dates: start: 20011001, end: 20080822
  2. AVONEX [Suspect]
     Indication: MULTIPLE SCLEROSIS
     Route: 030

REACTIONS (13)
  - DYSARTHRIA [None]
  - CEREBROVASCULAR ACCIDENT [None]
  - TRANSIENT ISCHAEMIC ATTACK [None]
  - AUTOIMMUNE DISORDER [None]
  - STRESS [None]
  - WEIGHT INCREASED [None]
  - COGNITIVE DISORDER [None]
  - ARTHRALGIA [None]
  - MUSCLE SPASMS [None]
  - ASTHENIA [None]
  - HYDROCEPHALUS [None]
  - VERTIGO [None]
  - DEPRESSION [None]
